FAERS Safety Report 13871517 (Version 2)
Quarter: 2017Q3

REPORT INFORMATION
  Report Type: Report from Study
  Country: IT (occurrence: IT)
  Receive Date: 20170816
  Receipt Date: 20170904
  Transmission Date: 20171127
  Serious: Yes (Hospitalization, Other)
  Sender: FDA-Public Use
  Company Number: IT-BIOGEN-2017BI00445280

PATIENT
  Age: 7 Month
  Sex: Female

DRUGS (2)
  1. RANITIDINE. [Concomitant]
     Active Substance: RANITIDINE
     Indication: PRODUCT USED FOR UNKNOWN INDICATION
     Route: 065
  2. SPINRAZA [Suspect]
     Active Substance: NUSINERSEN
     Indication: SPINAL MUSCULAR ATROPHY
     Route: 037
     Dates: start: 20170224

REACTIONS (4)
  - Gastrostomy [Unknown]
  - Hypotonia [Unknown]
  - Generalised resistance to thyroid hormone [Unknown]
  - Tracheostomy [Unknown]

NARRATIVE: CASE EVENT DATE: 201704
